FAERS Safety Report 6205625-9 (Version None)
Quarter: 2009Q2

REPORT INFORMATION
  Report Type: 
  Country: None (occurrence: None)
  Receive Date: 20090527
  Receipt Date: 20090410
  Transmission Date: 20091009
  Serious: No
  Sender: FDA-Public Use
  Company Number: US-ABBOTT-09P-163-0567585-00

PATIENT
  Sex: Male

DRUGS (13)
  1. SIMCOR [Suspect]
     Indication: BLOOD CHOLESTEROL INCREASED
     Dosage: 500/20MG
     Route: 048
     Dates: start: 20090329
  2. TYLENOL [Concomitant]
     Indication: DRUG USE FOR UNKNOWN INDICATION
  3. WARFARIN SODIUM [Concomitant]
     Indication: DRUG USE FOR UNKNOWN INDICATION
  4. VITAMIN B-12 [Concomitant]
     Indication: DRUG USE FOR UNKNOWN INDICATION
  5. IRON [Concomitant]
     Indication: DRUG USE FOR UNKNOWN INDICATION
  6. GAS X [Concomitant]
     Indication: DRUG USE FOR UNKNOWN INDICATION
  7. FMZITIPS [Concomitant]
     Indication: PROSTATIC DISORDER
  8. DITHENATROP [Concomitant]
     Indication: DIARRHOEA
  9. PHENAZOPYRID [Concomitant]
     Indication: DRUG USE FOR UNKNOWN INDICATION
  10. FUROSEMIDE [Concomitant]
     Indication: DRUG USE FOR UNKNOWN INDICATION
  11. FEXFENADINE [Concomitant]
     Indication: DRUG USE FOR UNKNOWN INDICATION
  12. ARTIFICIAL TEARS [Concomitant]
     Indication: DRUG USE FOR UNKNOWN INDICATION
  13. UNKNOWN INHALER [Concomitant]
     Indication: DRUG USE FOR UNKNOWN INDICATION

REACTIONS (2)
  - FLUSHING [None]
  - PRURITUS [None]
